FAERS Safety Report 6203571-8 (Version None)
Quarter: 2009Q2

REPORT INFORMATION
  Report Type: 
  Country: None (occurrence: None)
  Receive Date: 20090527
  Receipt Date: 20090522
  Transmission Date: 20091009
  Serious: Yes (Other)
  Sender: FDA-Public Use
  Company Number: FR-ABBOTT-08P-056-0473261-00

PATIENT
  Sex: Female
  Weight: 64 kg

DRUGS (3)
  1. HUMIRA [Suspect]
     Indication: CROHN'S DISEASE
     Route: 058
     Dates: start: 20060101, end: 20080701
  2. FIVASA [Concomitant]
     Indication: CROHN'S DISEASE
  3. IMUREL [Concomitant]
     Indication: CROHN'S DISEASE

REACTIONS (1)
  - ABORTION SPONTANEOUS [None]
